FAERS Safety Report 4948725-3 (Version None)
Quarter: 2006Q1

REPORT INFORMATION
  Report Type: 
  Country: None (occurrence: None)
  Receive Date: 20060313
  Receipt Date: 20060301
  Transmission Date: 20060701
  Serious: Yes (Death, Hospitalization)
  Sender: FDA-Public Use
  Company Number: HQWYE099002MAR06

PATIENT
  Age: 88 Year
  Sex: Male

DRUGS (9)
  1. CORDARONE [Suspect]
     Indication: MYOCARDIAL INFARCTION
     Dosage: 200 MG 1X PER 1 DAY ORAL
     Route: 048
     Dates: start: 20010101, end: 20060128
  2. AMLODIPINE [Concomitant]
  3. OMEPRAZOLE [Concomitant]
  4. FUROSEMIDE [Concomitant]
  5. CYPROTERONE ACETATE (CYPROTERONE ACETATE) [Concomitant]
  6. IBUPROFEN [Concomitant]
  7. ASPIRIN [Concomitant]
  8. INSULIN HUMAN (INSULIN HUMAN) [Concomitant]
  9. INSULIN ACTRAPID HUMAN (INSULIN HUMAN) [Concomitant]

REACTIONS (9)
  - BLOOD CREATININE INCREASED [None]
  - BRONCHIECTASIS [None]
  - BRONCHITIS [None]
  - BRONCHOPNEUMONIA [None]
  - FIBROSIS [None]
  - HAEMOGLOBIN DECREASED [None]
  - INTERSTITIAL LUNG DISEASE [None]
  - OEDEMA PERIPHERAL [None]
  - RESPIRATORY FAILURE [None]
